FAERS Safety Report 21185877 (Version 3)
Quarter: 2025Q1

REPORT INFORMATION
  Report Type: Spontaneous
  Country: JP (occurrence: JP)
  Receive Date: 20220808
  Receipt Date: 20250205
  Transmission Date: 20250409
  Serious: Yes (Other)
  Sender: BRISTOL-MYERS SQUIBB COMPANY
  Company Number: JP-ONO-2022JP021326

PATIENT

DRUGS (3)
  1. OPDIVO [Suspect]
     Active Substance: NIVOLUMAB
     Indication: Product used for unknown indication
     Route: 041
  2. OXIFAST [OXYCODONE HYDROCHLORIDE] [Concomitant]
     Indication: Product used for unknown indication
  3. OXIFAST [OXYCODONE HYDROCHLORIDE] [Concomitant]

REACTIONS (1)
  - Delirium [Unknown]
